FAERS Safety Report 9047165 (Version 1)
Quarter: 2013Q1

REPORT INFORMATION
  Report Type: Report from Study
  Country: US (occurrence: US)
  Receive Date: 20130130
  Receipt Date: 20130130
  Transmission Date: 20140127
  Serious: No
  Sender: FDA-Public Use
  Company Number: US-ABBOTT-12P-163-0977239-00

PATIENT
  Age: 68 Year
  Sex: Male

DRUGS (19)
  1. HUMIRA [Suspect]
     Indication: RHEUMATOID ARTHRITIS
  2. METHOTREXATE [Concomitant]
     Indication: RHEUMATOID ARTHRITIS
     Dosage: WEEKLY
  3. TRAMADOL [Concomitant]
     Indication: PAIN
     Dosage: 4-8 TABS DAILY
  4. NAPROXEN [Concomitant]
     Indication: PAIN
  5. PREVACID [Concomitant]
     Indication: GASTROOESOPHAGEAL REFLUX DISEASE
  6. CRESTOR [Concomitant]
     Indication: BLOOD CHOLESTEROL INCREASED
  7. TYLENOL ARTHRITIS [Concomitant]
     Indication: PAIN
  8. ANDROGEL [Concomitant]
     Indication: BLOOD TESTOSTERONE DECREASED
     Dosage: DAILY
  9. SYMBICORT [Concomitant]
     Indication: ASTHMA
     Dosage: DAILY
  10. SYMBICORT [Concomitant]
     Indication: CHRONIC OBSTRUCTIVE PULMONARY DISEASE
  11. SPIRIVA [Concomitant]
     Indication: ASTHMA
     Route: 055
  12. SPIRIVA [Concomitant]
     Indication: CHRONIC OBSTRUCTIVE PULMONARY DISEASE
  13. DALIRESP [Concomitant]
     Indication: ASTHMA
  14. DALIRESP [Concomitant]
     Indication: CHRONIC OBSTRUCTIVE PULMONARY DISEASE
  15. SINGULAR [Concomitant]
     Indication: ASTHMA
  16. SINGULAR [Concomitant]
     Indication: CHRONIC OBSTRUCTIVE PULMONARY DISEASE
  17. MULTIVITAMIN [Concomitant]
     Indication: SUPPLEMENTATION THERAPY
  18. IRON [Concomitant]
     Indication: SUPPLEMENTATION THERAPY
  19. FOLIC ACID [Concomitant]
     Indication: SUPPLEMENTATION THERAPY

REACTIONS (7)
  - Injection site mass [Recovered/Resolved]
  - Injection site pain [Recovered/Resolved]
  - Cluster headache [Recovered/Resolved]
  - Needle issue [Recovered/Resolved]
  - Incorrect dose administered [Recovered/Resolved]
  - Device malfunction [Recovered/Resolved]
  - Incorrect dose administered [Recovered/Resolved]
